FAERS Safety Report 12323466 (Version 1)
Quarter: 2016Q2

REPORT INFORMATION
  Report Type: Report from Study
  Country: DK (occurrence: IT)
  Receive Date: 20160502
  Receipt Date: 20160502
  Transmission Date: 20160815
  Serious: Yes (Other)
  Sender: FDA-Public Use
  Company Number: IT-FRI-1000084188

PATIENT
  Age: 53 Year
  Sex: Female

DRUGS (3)
  1. AMITRIPTYLINE-GENERIC [Suspect]
     Active Substance: AMITRIPTYLINE
     Indication: DRUG ABUSE
     Route: 048
     Dates: start: 20160319, end: 20160319
  2. CITALOPRAM [Suspect]
     Active Substance: CITALOPRAM HYDROBROMIDE
     Indication: DRUG ABUSE
     Route: 048
     Dates: start: 20160319, end: 20160319
  3. ALPRAZOLAM. [Suspect]
     Active Substance: ALPRAZOLAM
     Indication: DRUG ABUSE
     Route: 048
     Dates: start: 20160319, end: 20160319

REACTIONS (3)
  - Agitation [Recovering/Resolving]
  - Drug abuse [Recovering/Resolving]
  - Intentional overdose [Recovered/Resolved]

NARRATIVE: CASE EVENT DATE: 20160319
